FAERS Safety Report 4681041-6 (Version None)
Quarter: 2005Q2

REPORT INFORMATION
  Report Type: 
  Country: None (occurrence: None)
  Receive Date: 20050601
  Receipt Date: 20050601
  Transmission Date: 20051028
  Serious: Yes (Other)
  Sender: FDA-Public Use
  Company Number: None

PATIENT
  Age: 33 Year
  Sex: Female
  Weight: 83.4619 kg

DRUGS (4)
  1. NITROFURANTOIN 100MG NDC#00591-3250-01 [Suspect]
     Indication: URINARY TRACT INFECTION
     Dosage: 100MG BID ORAL
     Route: 048
     Dates: start: 20050523, end: 20050523
  2. OTC VITAMINS [Concomitant]
  3. VITAMIN AND MINERAL PRENATAL SUPPLEMENT W/ FOLIC ACID CAP [Concomitant]
  4. SLOW IRON [Concomitant]

REACTIONS (3)
  - ERYTHEMA OF EYELID [None]
  - EYELID OEDEMA [None]
  - VISUAL ACUITY REDUCED [None]
